FAERS Safety Report 4463697-6 (Version None)
Quarter: 2004Q3

REPORT INFORMATION
  Report Type: 
  Country: None (occurrence: None)
  Receive Date: 20040929
  Receipt Date: 20040910
  Transmission Date: 20050211
  Serious: Yes (Hospitalization, Other)
  Sender: FDA-Public Use
  Company Number: GBS040915568

PATIENT
  Age: 56 Year
  Sex: Male
  Weight: 116 kg

DRUGS (5)
  1. PROZAC [Suspect]
     Indication: DEPRESSION
     Dosage: 60 MG
     Dates: end: 20040820
  2. ENALAPRIL MALEATE [Concomitant]
  3. SIMVASTATIN [Concomitant]
  4. CLONIDINE HCL [Concomitant]
  5. MONOMAX (ISOSORBIDE MONONITRATE) [Concomitant]

REACTIONS (7)
  - BLOOD CREATINE PHOSPHOKINASE INCREASED [None]
  - BLOOD CREATININE INCREASED [None]
  - CHEST PAIN [None]
  - DEPRESSION [None]
  - HYPONATRAEMIA [None]
  - RENAL IMPAIRMENT [None]
  - SEROTONIN SYNDROME [None]
